FAERS Safety Report 9941819 (Version 2)
Quarter: 2014Q1

REPORT INFORMATION
  Report Type: Spontaneous
  Country: PR (occurrence: PR)
  Receive Date: 20140303
  Receipt Date: 20140303
  Transmission Date: 20141002
  Serious: No
  Sender: FDA-Public Use
  Company Number: PR-ABBVIE-13P-131-1030096-00

PATIENT
  Age: 55 Year
  Sex: Female
  Weight: 99.88 kg

DRUGS (6)
  1. HUMIRA [Suspect]
     Indication: PSORIATIC ARTHROPATHY
     Route: 058
     Dates: start: 201208, end: 201210
  2. HUMIRA [Suspect]
     Indication: RHEUMATOID ARTHRITIS
  3. METHOTREXATE [Concomitant]
     Indication: PSORIATIC ARTHROPATHY
     Dosage: EVERY 15 DAYS
     Route: 058
     Dates: start: 2000
  4. METHOTREXATE [Concomitant]
     Indication: RHEUMATOID ARTHRITIS
  5. CELEBREX [Concomitant]
     Indication: PSORIATIC ARTHROPATHY
     Route: 048
     Dates: start: 2009
  6. CELEBREX [Concomitant]
     Indication: RHEUMATOID ARTHRITIS

REACTIONS (4)
  - Blister [Recovered/Resolved]
  - Cellulitis [Unknown]
  - Cellulitis [Recovered/Resolved]
  - Local swelling [Recovered/Resolved]
